FAERS Safety Report 26138328 (Version 2)
Quarter: 2025Q4

REPORT INFORMATION
  Report Type: Report from Study
  Country: US (occurrence: US)
  Receive Date: 20251210
  Receipt Date: 20251223
  Transmission Date: 20260118
  Serious: Yes (Other)
  Sender: ACADIA PHARMACEUTICALS
  Company Number: US-ACADIA PHARMACEUTICALS INC.-ACA-2025-PIM-012930

PATIENT
  Age: 75 Year
  Sex: Male

DRUGS (19)
  1. NUPLAZID [Suspect]
     Active Substance: PIMAVANSERIN TARTRATE
     Indication: Parkinson^s disease psychosis
     Dosage: 34 MILLIGRAM, QD
     Route: 048
     Dates: start: 20250115
  2. QUETIAPINE [Concomitant]
     Active Substance: QUETIAPINE
  3. PANTOPRAZOLE [Concomitant]
     Active Substance: PANTOPRAZOLE
  4. PRAMIPEXOLE [Concomitant]
     Active Substance: PRAMIPEXOLE
  5. GABAPENTIN [Concomitant]
     Active Substance: GABAPENTIN
  6. SINEMET [Concomitant]
     Active Substance: CARBIDOPA\LEVODOPA
  7. LAMOTRIGINE [Concomitant]
     Active Substance: LAMOTRIGINE
  8. SERTRALINE [Concomitant]
     Active Substance: SERTRALINE HYDROCHLORIDE
  9. FUROSEMIDE [Concomitant]
     Active Substance: FUROSEMIDE
  10. FOLIC ACID [Concomitant]
     Active Substance: FOLIC ACID
  11. FLUDROCORTISONE [Concomitant]
     Active Substance: FLUDROCORTISONE
  12. MELATONIN [Concomitant]
     Active Substance: MELATONIN
  13. POTASSIUM [Concomitant]
     Active Substance: POTASSIUM
  14. TYLENOL [Concomitant]
     Active Substance: ACETAMINOPHEN
  15. COLACE [Concomitant]
     Active Substance: DOCUSATE SODIUM
  16. MIRALAX [Concomitant]
     Active Substance: POLYETHYLENE GLYCOL 3350
  17. VITAMIN B [Concomitant]
     Active Substance: VITAMIN B
  18. VITAMIN C [Concomitant]
     Active Substance: ASCORBIC ACID
  19. CHOLECALCIFEROL [Concomitant]
     Active Substance: CHOLECALCIFEROL

REACTIONS (1)
  - Hallucination [Not Recovered/Not Resolved]

NARRATIVE: CASE EVENT DATE: 20251202
